FAERS Safety Report 4817403-3 (Version None)
Quarter: 2005Q4

REPORT INFORMATION
  Report Type: 
  Country: None (occurrence: None)
  Receive Date: 20051031
  Receipt Date: 20051019
  Transmission Date: 20060501
  Serious: Yes (Other)
  Sender: FDA-Public Use
  Company Number: 2005145717

PATIENT
  Age: 24 Year
  Sex: Female

DRUGS (1)
  1. DEPO-PROVERA [Suspect]
     Indication: CONTRACEPTION
     Dosage: 150 MG (150 MG MG, 1ST INJECTION, TRIMESTRAL)
     Dates: start: 20010904, end: 20010904

REACTIONS (2)
  - BENIGN BREAST NEOPLASM [None]
  - PREGNANCY WITH INJECTABLE CONTRACEPTIVE [None]
